FAERS Safety Report 12876305 (Version 1)
Quarter: 2016Q4

REPORT INFORMATION
  Report Type: Spontaneous
  Country: US (occurrence: US)
  Receive Date: 20161021
  Receipt Date: 20161021
  Transmission Date: 20170207
  Serious: No
  Sender: FDA-Public Use
  Company Number: None

PATIENT
  Age: 54 Year
  Sex: Female

DRUGS (1)
  1. TACROLIMUS CAP 0.5MG [Suspect]
     Active Substance: TACROLIMUS
     Indication: MYELODYSPLASTIC SYNDROME

REACTIONS (4)
  - Bone marrow transplant [None]
  - Therapy change [None]
  - Tremor [None]
  - Graft versus host disease [None]

NARRATIVE: CASE EVENT DATE: 20161021
